FAERS Safety Report 24584495 (Version 3)
Quarter: 2024Q4

REPORT INFORMATION
  Report Type: Spontaneous
  Country: CA (occurrence: CA)
  Receive Date: 20241106
  Receipt Date: 20241213
  Transmission Date: 20250115
  Serious: Yes (Other)
  Sender: PFIZER
  Company Number: CA-PFIZER INC-202200908021

PATIENT
  Age: 47 Year
  Sex: Female

DRUGS (43)
  1. RUXIENCE [Suspect]
     Active Substance: RITUXIMAB-PVVR
     Indication: Granulomatosis with polyangiitis
     Dosage: 500 MG, WEEKLY FOR 4 WEEKS
     Route: 042
     Dates: start: 20220808, end: 20220808
  2. RUXIENCE [Suspect]
     Active Substance: RITUXIMAB-PVVR
     Dosage: 500 MG, WEEKLY FOR 4 WEEKS
     Route: 042
     Dates: start: 20220815, end: 20220815
  3. RUXIENCE [Suspect]
     Active Substance: RITUXIMAB-PVVR
     Dosage: 500 MG, WEEKLY FOR 4 WEEKS
     Route: 042
     Dates: start: 20220822, end: 20220822
  4. RUXIENCE [Suspect]
     Active Substance: RITUXIMAB-PVVR
     Dosage: 500 MG, WEEKLY FOR 4 WEEKS
     Route: 042
     Dates: start: 20220829, end: 20220829
  5. RUXIENCE [Suspect]
     Active Substance: RITUXIMAB-PVVR
     Dosage: 500 MG, WEEKLY FOR 4 WEEKS
     Route: 042
     Dates: start: 20230302, end: 20230302
  6. RUXIENCE [Suspect]
     Active Substance: RITUXIMAB-PVVR
     Dosage: 500 MG, WEEKLY FOR 4 WEEKS
     Route: 042
     Dates: start: 20230308, end: 20230308
  7. RUXIENCE [Suspect]
     Active Substance: RITUXIMAB-PVVR
     Dosage: 500 MG, WEEKLY FOR 4 WEEKS
     Route: 042
     Dates: start: 20230322, end: 20230322
  8. RUXIENCE [Suspect]
     Active Substance: RITUXIMAB-PVVR
     Dosage: 500 MG, WEEKLY FOR 4 WEEKS
     Route: 042
     Dates: start: 20230329, end: 20230329
  9. RUXIENCE [Suspect]
     Active Substance: RITUXIMAB-PVVR
     Dosage: 500 MG, WEEKLY, WEEK 1 OF SUBSEQUENT TREATMENT X4 WEEKS
     Route: 042
     Dates: start: 20231016, end: 20231016
  10. RUXIENCE [Suspect]
     Active Substance: RITUXIMAB-PVVR
     Dosage: 500 MG, WEEKLY FOR 4 WEEKS
     Route: 042
     Dates: start: 20231023, end: 20231023
  11. RUXIENCE [Suspect]
     Active Substance: RITUXIMAB-PVVR
     Dosage: 500 MG, WEEKLY FOR 4 WEEKS
     Route: 042
     Dates: start: 20231031, end: 20231031
  12. RUXIENCE [Suspect]
     Active Substance: RITUXIMAB-PVVR
     Dosage: 500 MG, WEEKLY X 4 WEEKS (2 WEEKS AND 6 DAYS)
     Route: 042
     Dates: start: 20231120, end: 20231120
  13. RUXIENCE [Suspect]
     Active Substance: RITUXIMAB-PVVR
     Dosage: 500 MG, WEEKLY FOR 4 WEEKS (500 MG, WEEK 1 (RETREATMENT))
     Route: 042
     Dates: start: 20240516, end: 20240516
  14. RUXIENCE [Suspect]
     Active Substance: RITUXIMAB-PVVR
     Dosage: 500MG WEEKLY FOR 4 WEEKS
     Route: 042
     Dates: start: 20240521, end: 20240521
  15. RUXIENCE [Suspect]
     Active Substance: RITUXIMAB-PVVR
     Dosage: 500 MG, WEEKLY AFTER 1 WEEK (WEEK4)
     Route: 042
     Dates: start: 20240605
  16. RUXIENCE [Suspect]
     Active Substance: RITUXIMAB-PVVR
     Dosage: 618.75 MG, WEEKLY (1 DF, 26 WEEKS)
     Route: 042
     Dates: start: 20241206
  17. RUXIENCE [Suspect]
     Active Substance: RITUXIMAB-PVVR
     Dosage: 618.75 MG, WEEKLY (1 DF, 26 WEEKS)
     Route: 042
     Dates: start: 20241206
  18. ACETAMINOPHEN [Concomitant]
     Active Substance: ACETAMINOPHEN
     Indication: Premedication
     Dosage: UNK
     Dates: start: 20230302, end: 20230302
  19. ACETAMINOPHEN [Concomitant]
     Active Substance: ACETAMINOPHEN
     Dosage: UNK
     Dates: start: 20230322, end: 20230322
  20. ACETAMINOPHEN [Concomitant]
     Active Substance: ACETAMINOPHEN
     Dosage: UNK
     Dates: start: 20230329, end: 20230329
  21. ACETAMINOPHEN [Concomitant]
     Active Substance: ACETAMINOPHEN
     Dosage: UNK
     Dates: start: 20231016, end: 20231016
  22. ACETAMINOPHEN [Concomitant]
     Active Substance: ACETAMINOPHEN
     Dosage: UNK
     Dates: start: 20231023, end: 20231023
  23. ACETAMINOPHEN [Concomitant]
     Active Substance: ACETAMINOPHEN
     Dosage: 650 MG
     Dates: start: 20231120, end: 20231120
  24. ACETAMINOPHEN [Concomitant]
     Active Substance: ACETAMINOPHEN
     Dosage: UNK
     Dates: start: 20241206, end: 20241206
  25. CHASTE TREE [Concomitant]
     Dosage: UNK
  26. CITALOPRAM [Concomitant]
     Active Substance: CITALOPRAM
     Dosage: 10 MG
  27. DEXLANSOPRAZOLE [Concomitant]
     Active Substance: DEXLANSOPRAZOLE
     Dosage: UNK
  28. EZETIMIBE [Concomitant]
     Active Substance: EZETIMIBE
     Dosage: UNK
  29. MELATONIN [Concomitant]
     Active Substance: MELATONIN
     Dosage: UNK
  30. METHYLPREDNISOLONE [Concomitant]
     Active Substance: METHYLPREDNISOLONE
     Indication: Premedication
     Dosage: UNK
     Dates: start: 20230302, end: 20230302
  31. METHYLPREDNISOLONE [Concomitant]
     Active Substance: METHYLPREDNISOLONE
     Dosage: UNK
     Dates: start: 20230322, end: 20230322
  32. METHYLPREDNISOLONE [Concomitant]
     Active Substance: METHYLPREDNISOLONE
     Dosage: UNK
     Dates: start: 20230329, end: 20230329
  33. METHYLPREDNISOLONE [Concomitant]
     Active Substance: METHYLPREDNISOLONE
     Dosage: UNK
     Dates: start: 20231016, end: 20231016
  34. METHYLPREDNISOLONE [Concomitant]
     Active Substance: METHYLPREDNISOLONE
     Dosage: UNK
     Dates: start: 20231023, end: 20231023
  35. METHYLPREDNISOLONE [Concomitant]
     Active Substance: METHYLPREDNISOLONE
     Dosage: 100 MG
     Dates: start: 20231120, end: 20231120
  36. METHYLPREDNISOLONE [Concomitant]
     Active Substance: METHYLPREDNISOLONE
     Dosage: UNK
     Dates: start: 20241206, end: 20241206
  37. METOPROLOL [Concomitant]
     Active Substance: METOPROLOL
     Dosage: 5 MG, 2X/DAY
  38. NASONEX [Concomitant]
     Active Substance: MOMETASONE FUROATE
     Dosage: UNK, AS NEEDED, PRN
  39. PERINDOPRIL [Concomitant]
     Active Substance: PERINDOPRIL
     Dosage: 2 MG
  40. PREDNISONE [Concomitant]
     Active Substance: PREDNISONE
     Dosage: 5 MG
  41. SIMVASTATIN [Concomitant]
     Active Substance: SIMVASTATIN
     Dosage: UNK
  42. VITAMIN B-COMPLEX [Concomitant]
     Active Substance: DEXPANTHENOL\NIACINAMIDE\PYRIDOXINE HYDROCHLORIDE\RIBOFLAVIN 5^-PHOSPHATE SODIUM\THIAMINE HYDROCHLOR
     Dosage: UNK
  43. VITAMIN D NOS [Concomitant]
     Active Substance: CHOLECALCIFEROL\ERGOCALCIFEROL
     Dosage: UNK

REACTIONS (8)
  - Renal failure [Unknown]
  - COVID-19 [Recovered/Resolved]
  - Headache [Recovering/Resolving]
  - Nasopharyngitis [Recovered/Resolved]
  - Off label use [Unknown]
  - Off label use [Unknown]
  - Intentional product use issue [Unknown]
  - Incorrect product administration duration [Unknown]

NARRATIVE: CASE EVENT DATE: 20221223
